FAERS Safety Report 10342343 (Version 1)
Quarter: 2014Q3

REPORT INFORMATION
  Report Type: Spontaneous
  Country: US (occurrence: US)
  Receive Date: 20140725
  Receipt Date: 20140725
  Transmission Date: 20150326
  Serious: No
  Sender: FDA-Public Use
  Company Number: US-GLAXOSMITHKLINE-A1035714A

PATIENT
  Sex: Male

DRUGS (5)
  1. NUTRITIONAL SUPPLEMENT [Concomitant]
     Active Substance: DIETARY SUPPLEMENT
  2. ALEVE [Concomitant]
     Active Substance: NAPROXEN SODIUM
  3. LAMICTAL [Suspect]
     Active Substance: LAMOTRIGINE
     Indication: NEURALGIA
     Dosage: 25MG PER DAY
     Route: 048
     Dates: start: 20130729
  4. KLONOPIN [Concomitant]
     Active Substance: CLONAZEPAM
  5. PRAZOSIN [Concomitant]
     Active Substance: PRAZOSIN

REACTIONS (1)
  - Off label use [Not Recovered/Not Resolved]
